FAERS Safety Report 4592647-7 (Version None)
Quarter: 2005Q1

REPORT INFORMATION
  Report Type: 
  Country: None (occurrence: None)
  Receive Date: 20050222
  Receipt Date: 20050208
  Transmission Date: 20050727
  Serious: Yes (Death, Hospitalization, Other)
  Sender: FDA-Public Use
  Company Number: 2005015585

PATIENT
  Age: 74 Year
  Sex: Female
  Weight: 49.9 kg

DRUGS (15)
  1. UNASYN [Suspect]
     Indication: PANCREATITIS
     Dosage: 6 GRAM (3 GRAM, 2 IN 1D), INTRAVENOUS
     Route: 042
     Dates: start: 20041127, end: 20041130
  2. PRODIF             (FOSFLUCONAZOLE) [Concomitant]
     Indication: PYREXIA
     Dosage: 252.3 MG (1 IN 1 D), INTRAVENOUS
     Route: 042
     Dates: start: 20041129, end: 20050118
  3. PRODIF             (FOSFLUCONAZOLE) [Concomitant]
     Indication: SYSTEMIC CANDIDA
     Dosage: 252.3 MG (1 IN 1 D), INTRAVENOUS
     Route: 042
     Dates: start: 20041129, end: 20050118
  4. IRINOTECAN HCL [Suspect]
     Indication: LARGE INTESTINE CARCINOMA
     Dosage: 40 MG (40 MG, 1 IN 1 WK), INTRAVENOUS
     Route: 042
     Dates: start: 20041129, end: 20041228
  5. FLUOROURACIL [Suspect]
     Indication: LARGE INTESTINE CARCINOMA
     Dosage: 750 MG (750 MG, 1 IN 2 WK), INTRAVENOUS
     Route: 042
     Dates: start: 20041129, end: 20041228
  6. MEROPENEM           (MEROPENEM) [Suspect]
     Indication: SEPSIS
     Dosage: 1 GRAM (0.5 GRAM, 2 IN 1 D), INTRAVENOUS
     Route: 042
     Dates: start: 20041201, end: 20050104
  7. PAZUFLOXACIN               (PAZUFLOXACIN) [Concomitant]
     Indication: SEPSIS
     Dosage: 1000 MG (500 MG, 2 IN 1 D), INTRAVENOUS
     Route: 042
     Dates: start: 20041209, end: 20051216
  8. CIPROFLOXACIN HYDROCHLORIDE [Concomitant]
  9. VANCOMYCIN HYDROCHLORID [Concomitant]
  10. LENOGRASTIM                     (LENOGRASTIM) [Concomitant]
  11. GABEXATE MESILATE                             (GABEXATE MESILATE) [Concomitant]
  12. CALCIUM FOLINATE                (CALCIUM FOLINATE) [Concomitant]
  13. AMINO ACIDS/CARBOHYDRATES/MINERALS/VITAMINS [Concomitant]
  14. ELEMENMIC          (MINERALS NOS) [Concomitant]
  15. INSULIN HUMAN      (INSULIN HUMAN) [Concomitant]

REACTIONS (6)
  - CARDIAC FAILURE [None]
  - LOSS OF CONSCIOUSNESS [None]
  - SEPSIS [None]
  - STAPHYLOCOCCAL INFECTION [None]
  - SYSTEMIC CANDIDA [None]
  - VENTRICULAR FIBRILLATION [None]
